FAERS Safety Report 6479753-7 (Version None)
Quarter: 2009Q4

REPORT INFORMATION
  Report Type: 
  Country: None (occurrence: None)
  Receive Date: 20091119
  Receipt Date: 20090820
  Transmission Date: 20100525
  Serious: No
  Sender: FDA-Public Use
  Company Number: WAES 0908USA03443

PATIENT
  Age: 74 Year
  Sex: Female

DRUGS (3)
  1. JANUVIA [Suspect]
     Indication: TYPE 2 DIABETES MELLITUS
     Dosage: 100 MG/DAILY/PO
     Route: 048
     Dates: start: 20090101, end: 20090819
  2. LANTUS [Concomitant]
  3. INSULIN [Concomitant]

REACTIONS (4)
  - EYE SWELLING [None]
  - NASAL CONGESTION [None]
  - PRURITUS [None]
  - RASH [None]
